FAERS Safety Report 13984973 (Version 31)
Quarter: 2019Q4

REPORT INFORMATION
  Report Type: Report from Study
  Country: US (occurrence: US)
  Receive Date: 20170919
  Receipt Date: 20191118
  Transmission Date: 20200122
  Serious: Yes (Death, Hospitalization, Other)
  Sender: FDA-Public Use
  Company Number: US-ACTELION-A-NJ2017-149451

PATIENT
  Age: 65 Year
  Sex: Female
  Weight: 84.81 kg

DRUGS (11)
  1. ADCIRCA [Concomitant]
     Active Substance: TADALAFIL
  2. VELETRI [Suspect]
     Active Substance: EPOPROSTENOL
     Dosage: 8 NG/KG, PER MIN
     Route: 042
  3. SILDENAFIL CITRATE. [Concomitant]
     Active Substance: SILDENAFIL CITRATE
  4. VELETRI [Suspect]
     Active Substance: EPOPROSTENOL
     Dosage: 7 NG/KG, PER MIN
     Route: 042
  5. VELETRI [Suspect]
     Active Substance: EPOPROSTENOL
     Dosage: 22 NG/KG, PER MIN
     Route: 042
  6. VELETRI [Suspect]
     Active Substance: EPOPROSTENOL
     Dosage: 8.5 NG/KG, PER MIN
     Route: 042
  7. VELETRI [Suspect]
     Active Substance: EPOPROSTENOL
     Indication: PULMONARY HYPERTENSION
     Dosage: 40 NG/KG, PER MIN
     Route: 042
  8. LETAIRIS [Concomitant]
     Active Substance: AMBRISENTAN
  9. VELETRI [Suspect]
     Active Substance: EPOPROSTENOL
     Dosage: 9.5 NG/KG, PER MIN
     Route: 042
  10. VELETRI [Suspect]
     Active Substance: EPOPROSTENOL
     Dosage: 10.5 NG/KG, PER MIN
     Route: 042
  11. VELETRI [Suspect]
     Active Substance: EPOPROSTENOL
     Dosage: 40 NG/KG, PER MIN
     Route: 042

REACTIONS (42)
  - Catheter site nodule [Unknown]
  - Cellulitis [Unknown]
  - Localised infection [Unknown]
  - Malaise [Recovering/Resolving]
  - Tenderness [Unknown]
  - Pruritus [Unknown]
  - Peripheral swelling [Unknown]
  - Vascular device infection [Unknown]
  - Lactic acidosis [Unknown]
  - Fall [Unknown]
  - Dermatitis contact [Unknown]
  - Erythema [Unknown]
  - Oedema peripheral [Unknown]
  - Transfusion [Unknown]
  - Catheter site erosion [Unknown]
  - Device use error [Unknown]
  - Lung neoplasm malignant [Unknown]
  - Oxygen saturation decreased [Unknown]
  - Limb discomfort [Unknown]
  - Dyspnoea exertional [Not Recovered/Not Resolved]
  - Dyspnoea at rest [Unknown]
  - Abdominal pain [Unknown]
  - Device dislocation [Unknown]
  - Catheter site pain [Unknown]
  - Catheter site erythema [Recovering/Resolving]
  - Blister [Unknown]
  - Nausea [Unknown]
  - Hospitalisation [Unknown]
  - Dyspnoea [Unknown]
  - Abdominal pain upper [Unknown]
  - Influenza [Unknown]
  - Catheter management [Unknown]
  - Chest pain [Unknown]
  - Bronchitis [Unknown]
  - Catheter site pruritus [Unknown]
  - Feeling hot [Unknown]
  - Death [Fatal]
  - Fluid retention [Unknown]
  - Device related infection [Unknown]
  - Headache [Unknown]
  - Hypersensitivity [Unknown]
  - Fungal infection [Unknown]

NARRATIVE: CASE EVENT DATE: 20170227
